FAERS Safety Report 11149541 (Version 3)
Quarter: 2015Q2

REPORT INFORMATION
  Report Type: Spontaneous
  Country: JP (occurrence: JP)
  Receive Date: 20150529
  Receipt Date: 20150619
  Transmission Date: 20150821
  Serious: Yes (Other)
  Sender: FDA-Public Use
  Company Number: JP-BIOCRYST PHARMACEUTICALS, INC.-2015BCR00113

PATIENT
  Age: 84 Year
  Sex: Male

DRUGS (7)
  1. FLUITRAN [Concomitant]
     Active Substance: TRICHLORMETHIAZIDE
     Indication: OEDEMA
     Dosage: 2 MG, 1X/DAY
     Route: 048
     Dates: start: 20141209
  2. SULPIRIDE [Concomitant]
     Active Substance: SULPIRIDE
     Indication: DECREASED APPETITE
     Dosage: 100 MG, 1X/DAY
     Dates: start: 20141202
  3. TEMOCAPRIL HYDROCHLORIDE [Concomitant]
     Active Substance: TEMOCAPRIL HYDROCHLORIDE
     Indication: DYSPHAGIA
     Dosage: 2 MG, 1X/DAY
     Route: 048
     Dates: start: 20141202
  4. MEMARY [Concomitant]
     Active Substance: MEMANTINE HYDROCHLORIDE
     Indication: DEMENTIA
     Dosage: 20 MG, 1X/DAY
     Route: 048
     Dates: start: 20141202
  5. ZOPICLONE [Concomitant]
     Active Substance: ZOPICLONE
     Indication: INSOMNIA
     Dosage: 10 MG, 1X/DAY
     Route: 048
     Dates: start: 20150106
  6. RAPIACTA [Suspect]
     Active Substance: PERAMIVIR
     Indication: INFLUENZA
     Dosage: 200 MG, 1X/DAY
     Route: 042
     Dates: start: 20150203, end: 20150203
  7. AMANTADINE HYDROCHLORIDE. [Concomitant]
     Active Substance: AMANTADINE HYDROCHLORIDE
     Indication: DYSPHAGIA
     Dosage: 100 MG, 1X/DAY
     Dates: start: 20141209

REACTIONS (1)
  - Pneumonia klebsiella [Recovering/Resolving]

NARRATIVE: CASE EVENT DATE: 20150205
